FAERS Safety Report 9115982 (Version 1)
Quarter: 2013Q1

REPORT INFORMATION
  Report Type: Spontaneous
  Country: FR (occurrence: FR)
  Receive Date: 20130225
  Receipt Date: 20130225
  Transmission Date: 20140127
  Serious: Yes (Hospitalization)
  Sender: FDA-Public Use
  Company Number: FR-ELI_LILLY_AND_COMPANY-FR201302003591

PATIENT
  Age: 67 Year
  Sex: Female

DRUGS (7)
  1. PROZAC [Suspect]
     Indication: DEPRESSION
     Dosage: UNK
     Route: 048
     Dates: start: 20110606, end: 20110616
  2. AMOXICILLINE                       /00249602/ [Concomitant]
     Indication: TOOTH ABSCESS
  3. MELATONIN [Concomitant]
     Dosage: UNK
     Dates: start: 20110511, end: 20110606
  4. ART 50 [Concomitant]
     Dosage: UNK
     Dates: end: 20110616
  5. VITAMIN D3 [Concomitant]
     Dosage: UNK
     Dates: start: 201105, end: 201106
  6. CLIMASTON [Concomitant]
  7. ZOPICLONE [Concomitant]

REACTIONS (2)
  - Drug reaction with eosinophilia and systemic symptoms [Recovered/Resolved]
  - Leukocytosis [Unknown]
